FAERS Safety Report 6437160-7 (Version None)
Quarter: 2009Q4

REPORT INFORMATION
  Report Type: 
  Country: None (occurrence: None)
  Receive Date: 20091102
  Receipt Date: 20091020
  Transmission Date: 20100525
  Serious: Yes (Other)
  Sender: FDA-Public Use
  Company Number: THYM-1001271

PATIENT

DRUGS (1)
  1. THYMOGLOBULIN [Suspect]
     Indication: TRANSPLANT REJECTION

REACTIONS (1)
  - TRANSPLANT REJECTION [None]
